FAERS Safety Report 4654004-4 (Version None)
Quarter: 2005Q2

REPORT INFORMATION
  Report Type: 
  Country: None (occurrence: None)
  Receive Date: 20050504
  Receipt Date: 20050422
  Transmission Date: 20051028
  Serious: Yes (Death)
  Sender: FDA-Public Use
  Company Number: L05-UKI-01564-01

PATIENT

DRUGS (1)
  1. CITALOPRAM [Suspect]

REACTIONS (1)
  - COMPLETED SUICIDE [None]
